FAERS Safety Report 6402609-2 (Version None)
Quarter: 2009Q4

REPORT INFORMATION
  Report Type: 
  Country: None (occurrence: None)
  Receive Date: 20091009
  Receipt Date: 20090930
  Transmission Date: 20100525
  Serious: No
  Sender: FDA-Public Use
  Company Number: ADR34022009

PATIENT
  Age: 41 Year
  Sex: Female

DRUGS (1)
  1. CIPROFLOXACIN [Suspect]
     Indication: URINARY TRACT INFECTION
     Dosage: 1 G
     Route: 048
     Dates: start: 20070110, end: 20070114

REACTIONS (14)
  - ABASIA [None]
  - ARTHRALGIA [None]
  - ARTHRITIS REACTIVE [None]
  - BACK PAIN [None]
  - BLINDNESS [None]
  - DRUG HYPERSENSITIVITY [None]
  - EYE DISCHARGE [None]
  - EYE INFLAMMATION [None]
  - INAPPROPRIATE SCHEDULE OF DRUG ADMINISTRATION [None]
  - KIDNEY INFECTION [None]
  - MUSCULOSKELETAL STIFFNESS [None]
  - OSTEITIS [None]
  - PAIN IN EXTREMITY [None]
  - SWELLING [None]
